FAERS Safety Report 14366623 (Version 1)
Quarter: 2018Q1

REPORT INFORMATION
  Report Type: Spontaneous
  Country: US (occurrence: US)
  Receive Date: 20180108
  Receipt Date: 20180108
  Transmission Date: 20180509
  Serious: Yes (Hospitalization)
  Sender: FDA-Public Use
  Company Number: None

PATIENT
  Age: 61 Year
  Sex: Male
  Weight: 88.5 kg

DRUGS (10)
  1. RIBAVIRIN 200 [Suspect]
     Active Substance: RIBAVIRIN
     Route: 048
  2. LASIX [Concomitant]
     Active Substance: FUROSEMIDE
  3. CLOPIDOGREL [Concomitant]
     Active Substance: CLOPIDOGREL BISULFATE
  4. LISINOPRIL. [Concomitant]
     Active Substance: LISINOPRIL
  5. OXYCODONE [Concomitant]
     Active Substance: OXYCODONE
  6. HARVONI [Suspect]
     Active Substance: LEDIPASVIR\SOFOSBUVIR
     Indication: HEPATITIS C
     Dosage: DOSE - 90-400MG
     Route: 048
     Dates: start: 20170614, end: 20170907
  7. LACTULOSE. [Concomitant]
     Active Substance: LACTULOSE
  8. SPIRONOLACTONE. [Concomitant]
     Active Substance: SPIRONOLACTONE
  9. AMITRIPTYLINE [Concomitant]
     Active Substance: AMITRIPTYLINE
  10. RIFAXIMIN. [Concomitant]
     Active Substance: RIFAXIMIN

REACTIONS (9)
  - Sepsis [None]
  - Hepatic failure [None]
  - Hypovolaemia [None]
  - Constipation [None]
  - Confusional state [None]
  - Gait disturbance [None]
  - Hypotension [None]
  - Urinary retention [None]
  - Gastrointestinal bacterial infection [None]

NARRATIVE: CASE EVENT DATE: 20170806
